FAERS Safety Report 6493029-3 (Version None)
Quarter: 2009Q4

REPORT INFORMATION
  Report Type: 
  Country: None (occurrence: None)
  Receive Date: 20091211
  Receipt Date: 20091211
  Transmission Date: 20100525
  Serious: Yes (Life-Threatening)
  Sender: FDA-Public Use
  Company Number: None

PATIENT
  Age: 65 Year
  Sex: Male
  Weight: 97 kg

DRUGS (17)
  1. ENOXAPARIN SODIUM [Suspect]
     Indication: ACUTE MYOCARDIAL INFARCTION
     Dosage: 100 MG EVERY 12 HOURS SQ
     Route: 058
     Dates: start: 20090310, end: 20090311
  2. EPTIFIBATIDE [Suspect]
     Dosage: 16 ML/HR CONTINUOUS INTRA CORPUS
     Route: 011
     Dates: start: 20090310, end: 20090311
  3. ONDANSETRON [Concomitant]
  4. REGULAR INSULIN [Concomitant]
  5. FUROSEMIDE [Concomitant]
  6. FLUCONAZOLE [Concomitant]
  7. LEVOFLOXACIN [Concomitant]
  8. MEROPENEM [Concomitant]
  9. METHYLPREDNISOLONE [Concomitant]
  10. OMEPRAZOLE [Concomitant]
  11. LISINOPRIL [Concomitant]
  12. ISOSORBIDE MONOHYDRATE [Concomitant]
  13. ASPIRIN [Concomitant]
  14. MAGNESIUM [Concomitant]
  15. NOVOLOG [Concomitant]
  16. POTASSIUM CHLORIDE [Concomitant]
  17. INSULIN GLARGINE [Concomitant]

REACTIONS (1)
  - PULMONARY ALVEOLAR HAEMORRHAGE [None]
